FAERS Safety Report 11980965 (Version 3)
Quarter: 2016Q2

REPORT INFORMATION
  Report Type: Spontaneous
  Country: US (occurrence: US)
  Receive Date: 20160129
  Receipt Date: 20160412
  Transmission Date: 20160815
  Serious: Yes (Hospitalization, Other)
  Sender: FDA-Public Use
  Company Number: US-BAXALTA-2016BLT000259

PATIENT
  Age: 13 Year
  Sex: Female
  Weight: 53.3 kg

DRUGS (4)
  1. GAMMAGARD S/D [Suspect]
     Active Substance: HUMAN IMMUNOGLOBULIN G
     Indication: PARALYSIS
  2. GAMMAGARD S/D [Suspect]
     Active Substance: HUMAN IMMUNOGLOBULIN G
     Indication: GUILLAIN-BARRE SYNDROME
     Dosage: 50 G, ONCE
     Route: 042
     Dates: start: 20151230, end: 20151230
  3. FLEBOGAMMA [Suspect]
     Active Substance: HUMAN IMMUNOGLOBULIN G
     Indication: PARALYSIS
  4. FLEBOGAMMA [Suspect]
     Active Substance: HUMAN IMMUNOGLOBULIN G
     Indication: GUILLAIN-BARRE SYNDROME
     Dosage: 50 G, ONCE
     Route: 042
     Dates: start: 20151231, end: 20151231

REACTIONS (4)
  - Condition aggravated [Recovering/Resolving]
  - Hepatitis B surface antigen positive [Recovering/Resolving]
  - Paralysis [Recovering/Resolving]
  - Hepatitis C [Recovering/Resolving]

NARRATIVE: CASE EVENT DATE: 20160115
